FAERS Safety Report 6168759-3 (Version None)
Quarter: 2009Q2

REPORT INFORMATION
  Report Type: 
  Country: None (occurrence: None)
  Receive Date: 20090427
  Receipt Date: 20090417
  Transmission Date: 20091009
  Serious: Yes (Other)
  Sender: FDA-Public Use
  Company Number: JP-MERCK-0904USA03482

PATIENT
  Age: 77 Year
  Sex: Female

DRUGS (5)
  1. ALENDRONATE SODIUM [Suspect]
     Indication: OSTEOPOROSIS
     Route: 048
     Dates: start: 20080708, end: 20090414
  2. REMODELLIN [Concomitant]
     Indication: OSTEOPOROSIS
     Route: 048
  3. ZENASPIRIN [Concomitant]
     Route: 048
  4. TIOSTAR [Concomitant]
     Route: 048
  5. PROPIVERINE HYDROCHLORIDE [Concomitant]
     Route: 048

REACTIONS (1)
  - OSTEOMYELITIS [None]
